FAERS Safety Report 8843454 (Version 1)
Quarter: 2012Q4

REPORT INFORMATION
  Report Type: Report from Study
  Country: FR (occurrence: FR)
  Receive Date: 20121016
  Receipt Date: 20121016
  Transmission Date: 20130627
  Serious: Yes (Other)
  Sender: FDA-Public Use
  Company Number: FR-TEVA-364004ISR

PATIENT
  Age: 69 Year
  Sex: Male

DRUGS (6)
  1. DEXAMETHASONE [Suspect]
     Indication: MULTIPLE MYELOMA
     Dosage: 40 Milligram Daily;
     Route: 048
  2. LENALIDOMIDE [Suspect]
     Indication: MULTIPLE MYELOMA
     Dosage: 25 Milligram Daily;
     Route: 048
  3. INEXIUM [Concomitant]
     Indication: PROPHYLAXIS AGAINST GASTROINTESTINAL ULCER
     Dosage: 20 Milligram Daily;
     Route: 048
  4. DUROGESIC [Concomitant]
     Indication: BACK PAIN
     Route: 062
  5. KARDEGIC [Concomitant]
     Indication: THROMBOSIS PROPHYLAXIS
     Dosage: 75 Milligram Daily;
     Route: 048
     Dates: start: 20120907
  6. KALEORID [Concomitant]
     Indication: HYPOKALAEMIA
     Dosage: 9000 Milligram Daily;
     Route: 048
     Dates: start: 20100507

REACTIONS (2)
  - Basal cell carcinoma [Recovered/Resolved]
  - Disease progression [Recovered/Resolved]
